FAERS Safety Report 4716056-2 (Version None)
Quarter: 2005Q3

REPORT INFORMATION
  Report Type: 
  Country: None (occurrence: None)
  Receive Date: 20050718
  Receipt Date: 20050712
  Transmission Date: 20060218
  Serious: Yes (Death, Hospitalization)
  Sender: FDA-Public Use
  Company Number: 200512334FR

PATIENT
  Age: 51 Year
  Sex: Male
  Weight: 90 kg

DRUGS (8)
  1. LOVENOX [Suspect]
     Indication: PROPHYLAXIS
     Route: 058
     Dates: start: 20050604, end: 20050605
  2. PREVISCAN 20 MG [Suspect]
     Indication: AORTIC VALVE REPLACEMENT
     Route: 048
     Dates: end: 20050602
  3. CAPTOPRIL [Concomitant]
     Route: 048
     Dates: end: 20050606
  4. LASIX [Concomitant]
     Route: 048
     Dates: end: 20050606
  5. SOTALEX [Concomitant]
     Route: 048
     Dates: end: 20050606
  6. ZOCOR [Concomitant]
     Route: 048
     Dates: end: 20050606
  7. CLAMOXYL [Concomitant]
  8. GENTAMICIN [Concomitant]

REACTIONS (9)
  - BLOOD PRESSURE DECREASED [None]
  - CEREBRAL ISCHAEMIA [None]
  - DEPRESSED LEVEL OF CONSCIOUSNESS [None]
  - EPISTAXIS [None]
  - HAEMORRHAGE [None]
  - HEPATIC ENCEPHALOPATHY [None]
  - MOUTH HAEMORRHAGE [None]
  - POST PROCEDURAL HAEMORRHAGE [None]
  - TOOTH EXTRACTION [None]
